FAERS Safety Report 16375961 (Version 1)
Quarter: 2019Q2

REPORT INFORMATION
  Report Type: Spontaneous
  Country: US (occurrence: US)
  Receive Date: 20190531
  Receipt Date: 20190531
  Transmission Date: 20190711
  Serious: No
  Sender: FDA-Public Use
  Company Number: US-BAYER-2019-106189

PATIENT
  Age: 91 Year
  Sex: Male
  Weight: 104 kg

DRUGS (2)
  1. ALEVE [Suspect]
     Active Substance: NAPROXEN SODIUM
     Dosage: 1 DF, HS
     Route: 048
  2. ANTIDIABETICUM [Concomitant]

REACTIONS (4)
  - Drug ineffective [Unknown]
  - Incorrect product administration duration [None]
  - Adverse event [None]
  - Underdose [Unknown]
